FAERS Safety Report 24381089 (Version 2)
Quarter: 2025Q3

REPORT INFORMATION
  Report Type: Spontaneous
  Country: US (occurrence: US)
  Receive Date: 20240930
  Receipt Date: 20250810
  Transmission Date: 20251021
  Serious: Yes (Other)
  Sender: ALEXION PHARMACEUTICALS
  Company Number: US-AstraZeneca-CH-00712842A

PATIENT
  Age: 52 Year
  Sex: Female

DRUGS (1)
  1. ULTOMIRIS [Suspect]
     Active Substance: RAVULIZUMAB-CWVZ
     Indication: Paroxysmal nocturnal haemoglobinuria
     Dosage: 2200 MILLIGRAM, Q8W
     Dates: start: 20230119

REACTIONS (2)
  - Intravascular haemolysis [Not Recovered/Not Resolved]
  - Extravascular haemolysis [Not Recovered/Not Resolved]

NARRATIVE: CASE EVENT DATE: 20240901
